FAERS Safety Report 16622161 (Version 2)
Quarter: 2019Q3

REPORT INFORMATION
  Report Type: Spontaneous
  Country: DE (occurrence: DE)
  Receive Date: 20190723
  Receipt Date: 20190809
  Transmission Date: 20191004
  Serious: Yes (Hospitalization, Other)
  Sender: FDA-Public Use
  Company Number: DE-TEVA-2019-DE-1080495

PATIENT
  Age: 71 Year
  Sex: Male
  Weight: 68 kg

DRUGS (9)
  1. PRAVASIN 20MG [Suspect]
     Active Substance: PRAVASTATIN SODIUM
     Dosage: INTAKE IN THE LAST TWO YEARS
     Dates: end: 201904
  2. ASPIRIN PROTECT 100 [Concomitant]
     Active Substance: ASPIRIN
     Indication: VASCULAR GRAFT
     Dosage: 1 TABLET DAILY
     Dates: start: 2003
  3. LISINOPRIL. [Suspect]
     Active Substance: LISINOPRIL
     Indication: VASCULAR GRAFT
     Dates: start: 2003, end: 2019
  4. PRAVASIN 20MG [Suspect]
     Active Substance: PRAVASTATIN SODIUM
  5. JODID 200 [Concomitant]
     Active Substance: POTASSIUM IODIDE
     Dosage: 1 TABLET DAILY
  6. TAMSULOSIN AL 0,4MG [Concomitant]
     Dosage: 1 TABLET EVERY 2ND DAY FOR ABOUT 10 YEARS
     Dates: start: 2009
  7. XUSAL 0,5MG [Concomitant]
     Dosage: 1 TABLET DAILY FOR ABOUT 10 YEARS
     Dates: start: 2009
  8. LISINOPRIL. [Suspect]
     Active Substance: LISINOPRIL
     Dosage: 2.5MG - 5MG AS NEEDED FOR SEVERAL WEEKS
     Dates: start: 2019
  9. PRAVASIN 20MG [Suspect]
     Active Substance: PRAVASTATIN SODIUM
     Indication: VASCULAR GRAFT
     Dosage: 1 TABLET DAILY
     Dates: start: 2003

REACTIONS (8)
  - Chills [Unknown]
  - Swelling face [Unknown]
  - Pollakiuria [Unknown]
  - Hypersensitivity [Unknown]
  - Dermatitis [Unknown]
  - Weight decreased [Unknown]
  - Adverse reaction [Unknown]
  - Blood pressure fluctuation [Unknown]
